FAERS Safety Report 11616701 (Version 5)
Quarter: 2016Q3

REPORT INFORMATION
  Report Type: Spontaneous
  Country: IT (occurrence: IT)
  Receive Date: 20151009
  Receipt Date: 20160701
  Transmission Date: 20161109
  Serious: Yes (Hospitalization)
  Sender: FDA-Public Use
  Company Number: IT-OTSUKA-2015_011499

PATIENT
  Age: 53 Year
  Sex: Male

DRUGS (8)
  1. HALOPERIDOL. [Suspect]
     Active Substance: HALOPERIDOL
     Dosage: 15 MG, UNK
     Route: 048
  2. HALOPERIDOL. [Suspect]
     Active Substance: HALOPERIDOL
     Indication: PRODUCT USED FOR UNKNOWN INDICATION
     Dosage: 4.5 MG, UNK
     Route: 048
     Dates: start: 2015
  3. HALOPERIDOL. [Suspect]
     Active Substance: HALOPERIDOL
     Dosage: 10 MG, QD
     Route: 048
  4. HALDOL DECANOATE [Suspect]
     Active Substance: HALOPERIDOL DECANOATE
     Indication: SCHIZOPHRENIA
     Dosage: 100 MG, EVERY 28 DAYS
     Route: 030
     Dates: end: 20150307
  5. HALOPERIDOL. [Suspect]
     Active Substance: HALOPERIDOL
     Dosage: 12 MG, UNK
     Route: 048
  6. ABILIFY MAINTENA [Suspect]
     Active Substance: ARIPIPRAZOLE
     Indication: SCHIZOPHRENIA
     Dosage: UNK, QM
     Route: 030
     Dates: start: 20150504, end: 20150702
  7. HALDOL DECANOATE [Suspect]
     Active Substance: HALOPERIDOL DECANOATE
     Dosage: 75 MG, UNK
     Route: 030
     Dates: end: 20150407
  8. HALOPERIDOL. [Suspect]
     Active Substance: HALOPERIDOL
     Dosage: 3 MG, UNK
     Route: 048
     Dates: start: 201505

REACTIONS (7)
  - Blood creatine phosphokinase increased [Unknown]
  - Psychiatric decompensation [Unknown]
  - Pneumonia [Unknown]
  - Asthenia [Unknown]
  - Drug monitoring procedure incorrectly performed [Unknown]
  - Treatment noncompliance [Unknown]
  - Drug ineffective [Recovered/Resolved]

NARRATIVE: CASE EVENT DATE: 2015
